FAERS Safety Report 7040190-8 (Version None)
Quarter: 2010Q4

REPORT INFORMATION
  Report Type: 
  Country: None (occurrence: None)
  Receive Date: 20101012
  Receipt Date: 20100930
  Transmission Date: 20110411
  Serious: Yes (Hospitalization, Other)
  Sender: FDA-Public Use
  Company Number: US-ELI_LILLY_AND_COMPANY-US201008003854

PATIENT
  Sex: Female

DRUGS (13)
  1. FORTEO [Suspect]
     Indication: OSTEOPOROSIS
     Dosage: 20 UG, DAILY (1/D)
     Route: 058
     Dates: start: 20100308
  2. DILAUDID [Concomitant]
     Dosage: 2 MG, AS NEEDED
  3. SYNTHROID [Concomitant]
     Dosage: 0.112 MG, UNK
  4. ASPIRIN [Concomitant]
     Dosage: 325 MG, DAILY (1/D)
  5. PREMPRO [Concomitant]
  6. ATENOLOL [Concomitant]
     Dosage: 50 MG, UNK
  7. PROTONIX [Concomitant]
     Dosage: 40 MG, UNK
  8. BACLOFEN [Concomitant]
  9. ZANTAC [Concomitant]
     Dosage: 300 MG, UNK
  10. CYCLOBENZAPRINE [Concomitant]
     Dosage: 10 MG, UNK
  11. ELAVIL [Concomitant]
  12. LIPITOR [Concomitant]
     Dosage: 10 MG, DAILY (1/D)
  13. LASIX [Concomitant]
     Dosage: 40 MG, DAILY (1/D)

REACTIONS (7)
  - CARDIAC ENZYMES INCREASED [None]
  - CATHETERISATION CARDIAC [None]
  - LOSS OF CONSCIOUSNESS [None]
  - MOVEMENT DISORDER [None]
  - MUSCLE SPASMS [None]
  - MUSCULAR WEAKNESS [None]
  - MYOCARDIAL INFARCTION [None]
